FAERS Safety Report 16837774 (Version 1)
Quarter: 2019Q3

REPORT INFORMATION
  Report Type: Spontaneous
  Country: CA (occurrence: CA)
  Receive Date: 20190923
  Receipt Date: 20190923
  Transmission Date: 20191005
  Serious: Yes (Other)
  Sender: FDA-Public Use
  Company Number: CA-TEVA-2019-CA-1112363

PATIENT
  Age: 53 Year
  Sex: Female
  Weight: 93 kg

DRUGS (16)
  1. ACETAMINOPHEN. [Concomitant]
     Active Substance: ACETAMINOPHEN
     Indication: FIBROMYALGIA
     Route: 048
  2. ESOMEPRAZOLE. [Concomitant]
     Active Substance: ESOMEPRAZOLE MAGNESIUM
     Indication: GASTROOESOPHAGEAL REFLUX DISEASE
     Dosage: 40 MILLIGRAM DAILY;
     Route: 048
  3. GLIMEPIRIDE. [Suspect]
     Active Substance: GLIMEPIRIDE
     Indication: TYPE 2 DIABETES MELLITUS
     Route: 065
  4. PHENAZOPYRIDINE. [Concomitant]
     Active Substance: PHENAZOPYRIDINE
     Indication: URINARY INCONTINENCE
     Dosage: 200 MILLIGRAM DAILY;
     Route: 048
  5. METFORMIN [Suspect]
     Active Substance: METFORMIN HYDROCHLORIDE
     Indication: TYPE 2 DIABETES MELLITUS
     Dosage: 1000 MILLIGRAM DAILY;
     Route: 048
  6. MAGNESIUM [Concomitant]
     Active Substance: MAGNESIUM
     Indication: PROPHYLAXIS
     Dosage: 200 MILLIGRAM DAILY;
     Route: 048
  7. MYRBETRIQ [Concomitant]
     Active Substance: MIRABEGRON
     Indication: HYPERTONIC BLADDER
     Dosage: 50 MILLIGRAM DAILY;
     Route: 048
  8. ASCORBIC ACID. [Concomitant]
     Active Substance: ASCORBIC ACID
     Indication: PROPHYLAXIS
     Dosage: 8000 MILLIGRAM DAILY;
     Route: 048
  9. NASONEX [Concomitant]
     Active Substance: MOMETASONE FUROATE
     Indication: HYPERSENSITIVITY
     Dosage: 50 MICROGRAM DAILY;
     Route: 045
  10. ADVAIR HFA [Concomitant]
     Active Substance: FLUTICASONE PROPIONATE\SALMETEROL XINAFOATE
     Indication: ASTHMA
     Dosage: 250 MICROGRAM DAILY;
     Route: 048
  11. FISH OIL/UBIDECARENONE [Concomitant]
     Indication: PROPHYLAXIS
     Dosage: 500 MILLIGRAM DAILY;
     Route: 048
  12. GLICLAZIDE [Suspect]
     Active Substance: GLICLAZIDE
     Indication: TYPE 2 DIABETES MELLITUS
     Dosage: 30 MILLIGRAM DAILY;
     Route: 048
  13. INSULIN GLARGINE [Suspect]
     Active Substance: INSULIN GLARGINE
     Indication: TYPE 2 DIABETES MELLITUS
     Route: 065
  14. LIRAGLUTIDE [Suspect]
     Active Substance: LIRAGLUTIDE
     Indication: TYPE 2 DIABETES MELLITUS
     Dosage: 1.8 MILLIGRAM DAILY;
     Route: 058
  15. ROSUVASTATIN CALCIUM. [Concomitant]
     Active Substance: ROSUVASTATIN CALCIUM
     Indication: DYSLIPIDAEMIA
     Dosage: 20 MILLIGRAM DAILY;
     Route: 048
  16. ROSUVASTATIN CALCIUM. [Concomitant]
     Active Substance: ROSUVASTATIN CALCIUM
     Dosage: 10 MILLIGRAM DAILY;
     Route: 048

REACTIONS (1)
  - Hypoglycaemic unconsciousness [Recovered/Resolved]
